FAERS Safety Report 6259029-3 (Version None)
Quarter: 2009Q3

REPORT INFORMATION
  Report Type: 
  Country: None (occurrence: None)
  Receive Date: 20090707
  Receipt Date: 20090629
  Transmission Date: 20100115
  Serious: Yes (Other)
  Sender: FDA-Public Use
  Company Number: PHHY2008GB31236

PATIENT
  Sex: Female

DRUGS (9)
  1. CLOZARIL [Suspect]
     Indication: POST-TRAUMATIC STRESS DISORDER
     Dosage: 175 MG, UNK
     Route: 048
     Dates: start: 20080221
  2. CLOZARIL [Suspect]
     Indication: DEPRESSION
  3. CLOZARIL [Suspect]
     Indication: SELF INJURIOUS BEHAVIOUR
  4. ATROPINE [Concomitant]
  5. PROPRANOLOL HYDROCHLORIDE [Concomitant]
     Indication: TACHYCARDIA
     Dosage: 80 MG, UNK
     Route: 048
  6. TEMAZEPAM [Concomitant]
     Indication: INSOMNIA
     Dosage: 10 MG, UNK
     Route: 048
  7. LEVOTHYROXINE SODIUM [Concomitant]
     Indication: HYPOTHYROIDISM
     Dosage: 25 UG, UNK
     Route: 048
  8. OMEPRAZOLE [Concomitant]
     Indication: GASTROOESOPHAGEAL REFLUX DISEASE
     Dosage: 20 MG , NID
     Route: 048
  9. MIRTAZAPINE [Concomitant]
     Indication: DEPRESSION
     Dosage: 45 MG, UNK
     Route: 048

REACTIONS (3)
  - CHOKING [None]
  - GASTROOESOPHAGEAL REFLUX DISEASE [None]
  - SALIVARY HYPERSECRETION [None]
